FAERS Safety Report 18695295 (Version 1)
Quarter: 2021Q1

REPORT INFORMATION
  Report Type: Spontaneous
  Country: CO (occurrence: CO)
  Receive Date: 20210104
  Receipt Date: 20210104
  Transmission Date: 20210419
  Serious: Yes (Hospitalization, Other)
  Sender: FDA-Public Use
  Company Number: CO-ASTELLAS-2020US046353

PATIENT
  Age: 55 Year
  Sex: Female

DRUGS (2)
  1. SIROLIMUS. [Concomitant]
     Active Substance: SIROLIMUS
     Indication: PROPHYLAXIS AGAINST GRAFT VERSUS HOST DISEASE
     Dosage: UNK UNK, UNKNOWN FREQ.
     Route: 065
  2. TACROLIMUS. [Suspect]
     Active Substance: TACROLIMUS
     Indication: PROPHYLAXIS AGAINST GRAFT VERSUS HOST DISEASE
     Dosage: UNK UNK, UNKNOWN FREQ.
     Route: 065

REACTIONS (6)
  - Sinusitis [Recovered/Resolved]
  - Acute respiratory failure [Not Recovered/Not Resolved]
  - Cytomegalovirus infection reactivation [Unknown]
  - Alveolar proteinosis [Not Recovered/Not Resolved]
  - Pneumocystis jirovecii infection [Unknown]
  - Adenoviral haemorrhagic cystitis [Unknown]
